FAERS Safety Report 8057538-8 (Version None)
Quarter: 2012Q1

REPORT INFORMATION
  Report Type: 
  Country: None (occurrence: None)
  Receive Date: 20120119
  Receipt Date: 20120110
  Transmission Date: 20120608
  Serious: Yes (Hospitalization)
  Sender: FDA-Public Use
  Company Number: US-ASTRAZENECA-2011SE61242

PATIENT
  Age: 61 Year
  Sex: Female

DRUGS (2)
  1. NEXIUM [Suspect]
     Route: 048
  2. LIPITOR [Concomitant]

REACTIONS (10)
  - PAIN [None]
  - URINARY TRACT INFECTION [None]
  - RENAL DISORDER [None]
  - MUSCLE STRAIN [None]
  - BACK DISORDER [None]
  - MALAISE [None]
  - DRUG DOSE OMISSION [None]
  - DYSPEPSIA [None]
  - GASTROOESOPHAGEAL REFLUX DISEASE [None]
  - BACK PAIN [None]
